FAERS Safety Report 9966316 (Version 1)
Quarter: 2014Q1

REPORT INFORMATION
  Report Type: Report from Study
  Country: US (occurrence: US)
  Receive Date: 20140305
  Receipt Date: 20140305
  Transmission Date: 20141002
  Serious: No
  Sender: FDA-Public Use
  Company Number: US-ABBVIE-13P-163-1119344-00

PATIENT
  Age: 69 Year
  Sex: Female

DRUGS (9)
  1. HUMIRA [Suspect]
     Indication: ANKYLOSING SPONDYLITIS
     Dates: start: 201211
  2. METFORMIN [Concomitant]
     Indication: DIABETES MELLITUS
  3. KLOR-CON [Concomitant]
     Indication: HYPOKALAEMIA
  4. PATANASE [Concomitant]
     Indication: HYPERSENSITIVITY
     Dosage: 1-2 TIMES A DAY AS NEEDED
  5. PROBIOTIC [Concomitant]
     Indication: SUPPLEMENTATION THERAPY
  6. ZEGERID [Concomitant]
     Indication: GASTROOESOPHAGEAL REFLUX DISEASE
  7. VITAMINS NOS [Concomitant]
     Indication: VITAMIN SUPPLEMENTATION
  8. LABETALOL [Concomitant]
     Indication: BLOOD PRESSURE MANAGEMENT
  9. VITAMIN D [Concomitant]
     Indication: VITAMIN SUPPLEMENTATION

REACTIONS (2)
  - Fatigue [Not Recovered/Not Resolved]
  - Viral infection [Recovered/Resolved]
